FAERS Safety Report 10563577 (Version 1)
Quarter: 2014Q4

REPORT INFORMATION
  Report Type: Spontaneous
  Country: US (occurrence: None)
  Receive Date: 20141103
  Receipt Date: 20141103
  Transmission Date: 20150529
  Serious: No
  Sender: FDA-Public Use
  Company Number: None

PATIENT
  Age: 60 Year
  Sex: Female
  Weight: 53.07 kg

DRUGS (1)
  1. METYLPREDNISOLONE [Suspect]
     Active Substance: METHYLPREDNISOLONE
     Indication: EAR CONGESTION
     Dosage: 21 TABLETS 6,5,4,3,2,1 TAKEN BY MOUTH
     Dates: start: 20141030, end: 20141031

REACTIONS (5)
  - Activities of daily living impaired [None]
  - Headache [None]
  - Muscular weakness [None]
  - Blood pressure decreased [None]
  - Myalgia [None]

NARRATIVE: CASE EVENT DATE: 20141101
